FAERS Safety Report 9539858 (Version 2)
Quarter: 2013Q3

REPORT INFORMATION
  Report Type: Spontaneous
  Country: US (occurrence: US)
  Receive Date: 20130920
  Receipt Date: 20130920
  Transmission Date: 20140515
  Serious: Yes (Death)
  Sender: FDA-Public Use
  Company Number: US-NAPPMUNDI-USA-2010-0058308

PATIENT
  Age: 24 Year
  Sex: Male

DRUGS (5)
  1. HYDROMORPHONE HCL (SIMILAR TO 19-892) [Suspect]
     Indication: DRUG ABUSE
  2. METHADONE [Suspect]
     Indication: DRUG ABUSE
  3. HYDROCODONE [Suspect]
     Indication: JOINT INJURY
  4. CANNABIS [Suspect]
     Indication: DRUG ABUSE
  5. ACETAMINOPHEN [Suspect]
     Indication: DRUG ABUSE

REACTIONS (1)
  - Accidental overdose [Fatal]
